FAERS Safety Report 5878286-6 (Version None)
Quarter: 2008Q3

REPORT INFORMATION
  Report Type: 
  Country: None (occurrence: None)
  Receive Date: 20080911
  Receipt Date: 20080905
  Transmission Date: 20090109
  Serious: Yes (Hospitalization)
  Sender: FDA-Public Use
  Company Number: US-ASTRAZENECA-2008UW14729

PATIENT
  Age: 55 Year
  Sex: Female
  Weight: 64.4 kg

DRUGS (8)
  1. SEROQUEL [Suspect]
     Indication: BIPOLAR DISORDER
     Dosage: 100 MG - 300 MG DAILY
     Route: 048
     Dates: start: 20070401
  2. SEROQUEL [Suspect]
     Indication: SLEEP DISORDER
     Dosage: 100 MG - 300 MG DAILY
     Route: 048
     Dates: start: 20070401
  3. EFFEXOR XR [Concomitant]
  4. EFFEXOR XR [Concomitant]
  5. ARIMIDEX [Concomitant]
  6. ACTONEL [Concomitant]
  7. POTASSIUM CHLORIDE [Concomitant]
  8. SYNTHROID [Concomitant]

REACTIONS (2)
  - HYPERPHAGIA [None]
  - WEIGHT INCREASED [None]
